FAERS Safety Report 8101833-0 (Version None)
Quarter: 2012Q1

REPORT INFORMATION
  Report Type: 
  Country: None (occurrence: None)
  Receive Date: 20120131
  Receipt Date: 20120130
  Transmission Date: 20120608
  Serious: Yes (Death, Life-Threatening, Hospitalization)
  Sender: FDA-Public Use
  Company Number: US-ROXANE LABORATORIES, INC.-2011-RO-01743RO

PATIENT
  Sex: Male

DRUGS (2)
  1. LORAZEPAM INTENSOL [Suspect]
     Indication: CONVULSION
     Dates: start: 20110901
  2. LORAZEPAM [Suspect]
     Indication: CONVULSION
     Route: 042

REACTIONS (4)
  - DEATH [None]
  - RESPIRATORY DEPRESSION [None]
  - DRUG INEFFECTIVE FOR UNAPPROVED INDICATION [None]
  - CONVULSION [None]
